FAERS Safety Report 20078938 (Version 1)
Quarter: 2021Q4

REPORT INFORMATION
  Report Type: Spontaneous
  Country: US (occurrence: US)
  Receive Date: 20211117
  Receipt Date: 20211117
  Transmission Date: 20220303
  Serious: No
  Sender: FDA-Public Use
  Company Number: US-ALLERGAN-2111173US

PATIENT
  Age: 79 Year
  Sex: Female

DRUGS (2)
  1. COMBIGAN [Suspect]
     Active Substance: BRIMONIDINE TARTRATE\TIMOLOL MALEATE
     Indication: Glaucoma
     Dosage: 2 GTT, BID
     Route: 047
     Dates: start: 2020
  2. Rohto drops [Concomitant]

REACTIONS (2)
  - Lacrimation increased [Not Recovered/Not Resolved]
  - Ocular hyperaemia [Not Recovered/Not Resolved]

NARRATIVE: CASE EVENT DATE: 20210301
